FAERS Safety Report 13284862 (Version 2)
Quarter: 2017Q2

REPORT INFORMATION
  Report Type: Report from Study
  Country: None (occurrence: BR)
  Receive Date: 20170301
  Receipt Date: 20170522
  Transmission Date: 20170830
  Serious: Yes (Other)
  Sender: FDA-Public Use
  Company Number: BR-ABBVIE-17P-020-1892556-00

PATIENT
  Age: 62 Year
  Sex: Female
  Weight: 62 kg

DRUGS (5)
  1. ARADOIS [Concomitant]
     Active Substance: LOSARTAN POTASSIUM
     Indication: BLOOD PRESSURE MEASUREMENT
     Dosage: FORM STRENGTH: ^50^
     Route: 065
     Dates: start: 2017
  2. TREZOR [Concomitant]
     Active Substance: ROSUVASTATIN CALCIUM
     Indication: BLOOD CHOLESTEROL
     Dosage: FORM STRENGTH: ^20^
     Route: 065
     Dates: start: 2013
  3. SERTRALINE [Concomitant]
     Active Substance: SERTRALINE HYDROCHLORIDE
     Indication: ANXIETY
     Route: 065
     Dates: start: 2002
  4. SYNTHROID [Suspect]
     Active Substance: LEVOTHYROXINE SODIUM
     Indication: THYROID DISORDER
     Dosage: 1 TABLET MORNING/ FASTING
     Route: 048
     Dates: start: 2002
  5. LEXOTAN [Concomitant]
     Active Substance: BROMAZEPAM
     Indication: ANXIETY
     Route: 065
     Dates: start: 2000

REACTIONS (9)
  - Ovarian cyst [Recovered/Resolved]
  - Renal impairment [Recovered/Resolved]
  - Inguinal hernia [Recovered/Resolved]
  - Salivary gland enlargement [Recovered/Resolved]
  - Carbohydrate antigen 125 [Recovered/Resolved]
  - Renal abscess [Recovered/Resolved]
  - Borderline serous tumour of ovary [Recovered/Resolved]
  - Renal disorder [Recovered/Resolved]
  - Migraine [Not Recovered/Not Resolved]
